FAERS Safety Report 25479134 (Version 1)
Quarter: 2025Q2

REPORT INFORMATION
  Report Type: Spontaneous
  Country: US (occurrence: None)
  Receive Date: 20250625
  Receipt Date: 20250625
  Transmission Date: 20250716
  Serious: Yes (Death, Life-Threatening, Hospitalization, Disabling)
  Sender: FDA-CTU
  Company Number: None

PATIENT
  Age: 70 Year
  Sex: Female
  Weight: 54 kg

DRUGS (16)
  1. ESTRADIOL AND PROGESTERONE [Suspect]
     Active Substance: ESTRADIOL\PROGESTERONE
     Indication: Hormone level abnormal
     Dosage: FREQUENCY : DAILY;?
     Route: 048
  2. ESTRADIOL AND PROGESTERONE [Suspect]
     Active Substance: ESTRADIOL\PROGESTERONE
     Indication: Hormone level abnormal
     Dosage: FREQUENCY : DAILY;?
     Route: 048
  3. ARMOUR THYROID [Suspect]
     Active Substance: THYROID, PORCINE
  4. NP THYROID [Concomitant]
     Active Substance: LEVOTHYROXINE\LIOTHYRONINE
  5. PROGESTERONE E4M (C) [Concomitant]
  6. TESTOST [Concomitant]
  7. TESTOSTERONE [Concomitant]
     Active Substance: TESTOSTERONE
  8. BIOTE METHI-GUARD PLUS B COMPLEX [Concomitant]
  9. BIOTE IODINE PLUS [Concomitant]
  10. BIOTE DIM [Concomitant]
  11. DIETARY SUPPLEMENT [Concomitant]
     Active Substance: DIETARY SUPPLEMENT
  12. ENZYMES [Concomitant]
  13. VITAMIN C [Concomitant]
     Active Substance: ASCORBIC ACID
  14. LACTOBACILLUS ACIDOPHILUS [Concomitant]
     Active Substance: LACTOBACILLUS ACIDOPHILUS
  15. SENNA-S [Concomitant]
     Active Substance: DOCUSATE SODIUM\SENNOSIDES
  16. MILK OF MAGNESIA [Concomitant]
     Active Substance: MAGNESIUM HYDROXIDE

REACTIONS (3)
  - Breast cancer [None]
  - Uterine cancer [None]
  - Uterine leiomyoma [None]

NARRATIVE: CASE EVENT DATE: 20240702
